FAERS Safety Report 10415442 (Version 2)
Quarter: 2014Q3

REPORT INFORMATION
  Report Type: Spontaneous
  Country: FR (occurrence: FR)
  Receive Date: 20140828
  Receipt Date: 20140828
  Transmission Date: 20150326
  Serious: Yes (Hospitalization)
  Sender: FDA-Public Use
  Company Number: PHHY2014FR085150

PATIENT
  Age: 49 Year
  Sex: Female

DRUGS (8)
  1. NORSET [Suspect]
     Active Substance: MIRTAZAPINE
     Dosage: 15 MG, DAILY
     Route: 048
  2. HYDROCHLOROTHIAZIDE\VALSARTAN [Suspect]
     Active Substance: HYDROCHLOROTHIAZIDE\VALSARTAN
     Dosage: 1 DF, (80 MG VALS AND 12.5 MG HYDR)DAILY
     Route: 048
     Dates: start: 201404, end: 20140605
  3. METHADONE HYDROCHLORIDE. [Suspect]
     Active Substance: METHADONE HYDROCHLORIDE
     Dosage: 140 MG, DAILY
     Route: 048
  4. ZYPREXA [Suspect]
     Active Substance: OLANZAPINE
     Dosage: 2 DF (10MG) DAILY
     Route: 048
  5. KARDEGIC [Suspect]
     Active Substance: ASPIRIN LYSINE
     Dosage: 160 MG, DAILY
     Route: 048
  6. SERESTA [Suspect]
     Active Substance: OXAZEPAM
     Dosage: 25 MG, TID
     Route: 048
  7. ATARAX//HYDROXYZINE HYDROCHLORIDE [Concomitant]
     Dosage: 150 MG, DAILY
     Route: 048
  8. TEGRETOL LP [Suspect]
     Active Substance: CARBAMAZEPINE
     Dosage: 2 DF (400MG) DAILY
     Route: 048

REACTIONS (3)
  - Anaemia [Unknown]
  - Fall [Unknown]
  - Hyponatraemia [Recovering/Resolving]

NARRATIVE: CASE EVENT DATE: 20140601
